FAERS Safety Report 8235658-2 (Version None)
Quarter: 2012Q1

REPORT INFORMATION
  Report Type: 
  Country: None (occurrence: None)
  Receive Date: 20120323
  Receipt Date: 20120308
  Transmission Date: 20120608
  Serious: Yes (Hospitalization, Other)
  Sender: FDA-Public Use
  Company Number: 2012-087

PATIENT
  Age: 44 Year
  Sex: Male

DRUGS (5)
  1. OPANA (OXYMORPHONE HYDROCHLORIDE) HYDROCODONE W/ACETAMINOPHEN (HYDROCO [Concomitant]
  2. PRIALT [Suspect]
     Indication: COMPLEX REGIONAL PAIN SYNDROME
     Dosage: 0.125 UG, ONCE/HOUR, INTRATHECAL, 0.048 UG/HOUR, INTRATHECAL
     Route: 037
     Dates: start: 20120220, end: 20120228
  3. PRIALT [Suspect]
     Indication: PAIN
     Dosage: 0.125 UG, ONCE/HOUR, INTRATHECAL, 0.048 UG/HOUR, INTRATHECAL
     Route: 037
     Dates: start: 20120220, end: 20120228
  4. PRIALT [Suspect]
     Indication: COMPLEX REGIONAL PAIN SYNDROME
     Dosage: 0.125 UG, ONCE/HOUR, INTRATHECAL, 0.048 UG/HOUR, INTRATHECAL
     Route: 037
     Dates: start: 20120101, end: 20120220
  5. PRIALT [Suspect]
     Indication: PAIN
     Dosage: 0.125 UG, ONCE/HOUR, INTRATHECAL, 0.048 UG/HOUR, INTRATHECAL
     Route: 037
     Dates: start: 20120101, end: 20120220

REACTIONS (10)
  - SCREAMING [None]
  - HALLUCINATION, AUDITORY [None]
  - AGGRESSION [None]
  - ASTHENIA [None]
  - CRYING [None]
  - MENTAL STATUS CHANGES [None]
  - AGITATION [None]
  - HALLUCINATION, VISUAL [None]
  - BALANCE DISORDER [None]
  - DRY MOUTH [None]
